FAERS Safety Report 6637966 (Version 2)
Quarter: 2020Q3

REPORT INFORMATION
  Report Type: Spontaneous
  Country: FR (occurrence: FR)
  Receive Date: 20080512
  Receipt Date: 20080529
  Transmission Date: 20201105
  Serious: Yes (Hospitalization)
  Sender: FDA-Public Use
  Company Number: FR-ROCHE-559777

PATIENT
  Age: 59 Year
  Sex: Female

DRUGS (3)
  1. IBANDRONIC ACID. [Suspect]
     Active Substance: IBANDRONIC ACID
     Dosage: FORM: INJECTABLE SOLUTION, ROUTE: INTRAVENOUS.
     Route: 050
     Dates: start: 20080417, end: 20080417
  2. IBANDRONIC ACID. [Suspect]
     Active Substance: IBANDRONIC ACID
     Indication: BREAST CANCER
     Dosage: A PART OF THE DRUG WAS GIVEN SUBCUTANEOUSLY.
     Route: 050
     Dates: start: 20080417, end: 20080417
  3. UNSPECIFIED INGREDIENT [Concomitant]
     Active Substance: UNSPECIFIED INGREDIENT
     Indication: BREAST CANCER

REACTIONS (5)
  - Incorrect route of product administration [None]
  - Erythema [Recovered/Resolved]
  - Extravasation [None]
  - Pain [Recovered/Resolved]
  - Localised oedema [Recovered/Resolved]

NARRATIVE: CASE EVENT DATE: 20080417
